FAERS Safety Report 10570078 (Version 1)
Quarter: 2014Q4

REPORT INFORMATION
  Report Type: Spontaneous
  Country: US (occurrence: None)
  Receive Date: 20141106
  Receipt Date: 20141106
  Transmission Date: 20150529
  Serious: Yes (Life-Threatening, Disabling)
  Sender: FDA-Public Use
  Company Number: None

PATIENT
  Age: 42 Year
  Sex: Male
  Weight: 131.09 kg

DRUGS (3)
  1. INTERFERON ALFA 2B [Suspect]
     Active Substance: INTERFERON ALFA-2B
     Indication: MALIGNANT MELANOMA
     Dosage: DELIVERED AS CHEMO INTO A PORT ON CHEST, 30 DAYS IN A ROW THEN EVERY OTHER DAY BY INJECTION PEN FO ?
     Dates: start: 20071105, end: 20080830
  2. INTRON A [Suspect]
     Active Substance: INTERFERON ALFA-2B
  3. INTERFERON ALFA 2B [Suspect]
     Active Substance: INTERFERON ALFA-2B
     Dosage: DELIVERED AS CHEMO INTO A PORT ON CHEST, 30 DAYS IN A ROW THEN EVERY OTHER DAY BY INJECTION PEN FO ?
     Dates: start: 20071105, end: 20080830

REACTIONS (15)
  - Depression [None]
  - Affect lability [None]
  - Aggression [None]
  - Homicidal ideation [None]
  - Anxiety [None]
  - Mania [None]
  - Personality disorder [None]
  - Suicide attempt [None]
  - Abnormal dreams [None]
  - Nervousness [None]
  - Suicidal ideation [None]
  - Psychotic disorder [None]
  - Bipolar I disorder [None]
  - Dementia [None]
  - Apathy [None]

NARRATIVE: CASE EVENT DATE: 20071105
